FAERS Safety Report 22221391 (Version 1)
Quarter: 2023Q2

REPORT INFORMATION
  Report Type: Spontaneous
  Country: US (occurrence: US)
  Receive Date: 20230418
  Receipt Date: 20230418
  Transmission Date: 20230721
  Serious: No
  Sender: FDA-Public Use
  Company Number: US-AMGEN-USASP2023062181

PATIENT
  Age: 70 Year
  Sex: Female

DRUGS (2)
  1. AMJEVITA [Suspect]
     Active Substance: ADALIMUMAB-ATTO
     Indication: Psoriasis
     Dosage: 40 MILLIGRAM, Q2WK
     Route: 065
  2. AMJEVITA [Suspect]
     Active Substance: ADALIMUMAB-ATTO
     Dosage: 40 MILLIGRAM, Q2WK
     Route: 065

REACTIONS (1)
  - Device difficult to use [Unknown]

NARRATIVE: CASE EVENT DATE: 20230406
